FAERS Safety Report 11642779 (Version 1)
Quarter: 2015Q4

REPORT INFORMATION
  Report Type: Report from Study
  Country: FR (occurrence: FR)
  Receive Date: 20151020
  Receipt Date: 20151020
  Transmission Date: 20160304
  Serious: Yes (Other)
  Sender: FDA-Public Use
  Company Number: FR-ROCHE-1648321

PATIENT
  Age: 77 Year
  Sex: Female

DRUGS (14)
  1. RANIBIZUMAB [Suspect]
     Active Substance: RANIBIZUMAB
     Dosage: IN LEFT EYE
     Route: 050
     Dates: start: 20140604
  2. LOSARTAN. [Concomitant]
     Active Substance: LOSARTAN
  3. RANIBIZUMAB [Suspect]
     Active Substance: RANIBIZUMAB
     Dosage: IN LEFT EYE
     Route: 050
     Dates: start: 20150227
  4. INSULIN [Concomitant]
     Active Substance: INSULIN NOS
  5. VITABACT [Concomitant]
     Active Substance: PICLOXYDINE DIHYDROCHLORIDE
     Route: 065
     Dates: start: 201411
  6. RANIBIZUMAB [Suspect]
     Active Substance: RANIBIZUMAB
     Indication: DIABETIC RETINAL OEDEMA
     Dosage: IN RIGHT EYE
     Route: 050
     Dates: start: 20140305
  7. LOXOPROFEN SODIUM [Concomitant]
     Active Substance: LOXOPROFEN SODIUM
     Route: 065
     Dates: start: 201411
  8. RILMENIDINE [Concomitant]
     Active Substance: RILMENIDINE
  9. DIAMICRON [Concomitant]
     Active Substance: GLICLAZIDE
  10. VELMETIA [Concomitant]
     Active Substance: METFORMIN\SITAGLIPTIN
  11. LEXOMIL [Concomitant]
     Active Substance: BROMAZEPAM
     Route: 065
     Dates: start: 201411
  12. RANIBIZUMAB [Suspect]
     Active Substance: RANIBIZUMAB
     Dosage: IN LEFT EYE
     Route: 050
     Dates: start: 20140903
  13. RANIBIZUMAB [Suspect]
     Active Substance: RANIBIZUMAB
     Dosage: IN LEFT EYE
     Route: 050
     Dates: start: 20140702
  14. RANIBIZUMAB [Suspect]
     Active Substance: RANIBIZUMAB
     Dosage: IN LEFT EYE
     Route: 050
     Dates: start: 20140730

REACTIONS (4)
  - Memory impairment [Unknown]
  - Paraesthesia [Unknown]
  - Vitreous haemorrhage [Recovered/Resolved]
  - Fatigue [Unknown]

NARRATIVE: CASE EVENT DATE: 20140901
